FAERS Safety Report 9690415 (Version 1)
Quarter: 2013Q4

REPORT INFORMATION
  Report Type: Spontaneous
  Country: US (occurrence: None)
  Receive Date: 20131114
  Receipt Date: 20131114
  Transmission Date: 20140711
  Serious: Yes (Other)
  Sender: FDA-Public Use
  Company Number: None

PATIENT
  Age: 55 Year
  Sex: Male
  Weight: 135 kg

DRUGS (4)
  1. SAPHRIS [Suspect]
     Indication: BIPOLAR DISORDER
     Route: 060
     Dates: start: 20120104, end: 20130923
  2. ABILIFY [Concomitant]
  3. OLANZAPINE [Concomitant]
  4. SEROQUEL [Concomitant]

REACTIONS (3)
  - Tardive dyskinesia [None]
  - Limb injury [None]
  - Nail discolouration [None]
